FAERS Safety Report 8019483-3 (Version None)
Quarter: 2012Q1

REPORT INFORMATION
  Report Type: 
  Country: None (occurrence: None)
  Receive Date: 20120103
  Receipt Date: 20111230
  Transmission Date: 20120608
  Serious: Yes (Other)
  Sender: FDA-Public Use
  Company Number: PHHY2011CH110248

PATIENT
  Sex: Female
  Weight: 98 kg

DRUGS (3)
  1. EXJADE [Suspect]
     Indication: CHELATION THERAPY
     Dosage: 500 MG, UNK
     Route: 048
     Dates: start: 20110604
  2. ABILIFY [Concomitant]
     Indication: DEPRESSION
     Dosage: 5 MG, UNK
     Route: 048
     Dates: start: 20110612
  3. FLUOXETINE HYDROCHLORIDE [Concomitant]
     Indication: DEPRESSION
     Dosage: 20 MG, UNK
     Route: 048
     Dates: start: 20110712

REACTIONS (2)
  - PAIN IN EXTREMITY [None]
  - BLOOD CREATINE PHOSPHOKINASE INCREASED [None]
